FAERS Safety Report 12503365 (Version 1)
Quarter: 2016Q2

REPORT INFORMATION
  Report Type: Spontaneous
  Country: US (occurrence: None)
  Receive Date: 20160627
  Receipt Date: 20160627
  Transmission Date: 20160815
  Serious: Yes (Other)
  Sender: FDA-Public Use
  Company Number: None

PATIENT
  Age: 67 Year
  Sex: Male
  Weight: 83.92 kg

DRUGS (16)
  1. LITHIUM CARBOTE [Concomitant]
  2. CARVEDILOL. [Concomitant]
     Active Substance: CARVEDILOL
  3. MAGNEZIUM [Concomitant]
  4. TESTOSTERON [Concomitant]
     Active Substance: TESTOSTERONE
  5. CLOPIDOGREL [Concomitant]
     Active Substance: CLOPIDOGREL BISULFATE
  6. LAMOTRIGINE, 100 MG ZYDUS PHARMAC [Suspect]
     Active Substance: LAMOTRIGINE
     Indication: DEPRESSION
     Dosage: 7 TABLETS ONCE A DAY
     Route: 048
     Dates: start: 20160617, end: 20160624
  7. BENAZEPRIL [Concomitant]
     Active Substance: BENAZEPRIL HYDROCHLORIDE
  8. ISOSORBIDE. [Concomitant]
     Active Substance: ISOSORBIDE
  9. PRAVASTATIN [Concomitant]
     Active Substance: PRAVASTATIN\PRAVASTATIN SODIUM
  10. VITAMIN B12 [Concomitant]
     Active Substance: CYANOCOBALAMIN
  11. METFORMIN [Concomitant]
     Active Substance: METFORMIN HYDROCHLORIDE
  12. CYANOCOBALAMIN. [Concomitant]
     Active Substance: CYANOCOBALAMIN
  13. MORPHINE SULFATE. [Concomitant]
     Active Substance: MORPHINE SULFATE
  14. ZOLPIDEN [Concomitant]
  15. DIAZEPAM. [Concomitant]
     Active Substance: DIAZEPAM
  16. VITAMIN D3 [Concomitant]
     Active Substance: CHOLECALCIFEROL

REACTIONS (6)
  - Lymphadenopathy [None]
  - Peripheral swelling [None]
  - Pharyngeal oedema [None]
  - Throat tightness [None]
  - Dyspnoea [None]
  - Lip swelling [None]

NARRATIVE: CASE EVENT DATE: 20160623
